FAERS Safety Report 5484416-0 (Version None)
Quarter: 2007Q4

REPORT INFORMATION
  Report Type: 
  Country: None (occurrence: None)
  Receive Date: 20071010
  Receipt Date: 20070927
  Transmission Date: 20080405
  Serious: Yes (Death, Hospitalization)
  Sender: FDA-Public Use
  Company Number: 2007S1000389

PATIENT
  Age: 58 Year
  Sex: Female
  Weight: 50.9 kg

DRUGS (21)
  1. CUBICIN [Suspect]
     Indication: BACTERAEMIA
     Dosage: 8 MG/KG;Q48H;IV
     Route: 042
     Dates: start: 20070101, end: 20070111
  2. CUBICIN [Suspect]
     Indication: ENTEROCOCCAL INFECTION
     Dosage: 8 MG/KG;Q48H;IV
     Route: 042
     Dates: start: 20070101, end: 20070111
  3. VANCOMYCIN [Concomitant]
  4. MEROPENEM [Concomitant]
  5. METRONIDAZOLE [Concomitant]
  6. SEPTRA DS [Concomitant]
  7. AZITHROMYCIN [Concomitant]
  8. FLUCONAZOLE [Concomitant]
  9. INSULIN [Concomitant]
  10. METHYLPREDNISOLONE [Concomitant]
  11. FUROSEMIDE [Concomitant]
  12. CLONIDINE [Concomitant]
  13. VANCOMYCIN [Concomitant]
  14. CEFEPIME [Concomitant]
  15. ACYCLOVIR /00587301/ [Concomitant]
  16. ALBUMIN (HUMAN) [Concomitant]
  17. CIPROFLOXACIN [Concomitant]
  18. CYCLOSPORINE [Concomitant]
  19. TPN [Concomitant]
  20. DOPAMINE HCL [Concomitant]
  21. FENTANYL [Concomitant]

REACTIONS (4)
  - CLOSTRIDIUM DIFFICILE COLITIS [None]
  - GRAFT VERSUS HOST DISEASE [None]
  - MALNUTRITION [None]
  - MULTI-ORGAN FAILURE [None]
